FAERS Safety Report 13902944 (Version 1)
Quarter: 2017Q3

REPORT INFORMATION
  Report Type: Spontaneous
  Country: US (occurrence: US)
  Receive Date: 20170824
  Receipt Date: 20170824
  Transmission Date: 20171127
  Serious: Yes (Life-Threatening, Hospitalization)
  Sender: FDA-Public Use
  Company Number: US-SA-2017SA154006

PATIENT
  Age: 30 Year
  Sex: Male

DRUGS (3)
  1. SOLOSTAR [Suspect]
     Active Substance: DEVICE
     Indication: TYPE 1 DIABETES MELLITUS
     Dates: start: 201707, end: 201708
  2. TOUJEO [Suspect]
     Active Substance: INSULIN GLARGINE
     Indication: TYPE 1 DIABETES MELLITUS
     Route: 051
     Dates: start: 201707, end: 201708
  3. HUMALOG [Concomitant]
     Active Substance: INSULIN LISPRO

REACTIONS (2)
  - Cardiac disorder [Recovered/Resolved]
  - Ketoacidosis [Recovered/Resolved]
